FAERS Safety Report 13966427 (Version 1)
Quarter: 2017Q3

REPORT INFORMATION
  Report Type: Spontaneous
  Country: FR (occurrence: FR)
  Receive Date: 20170913
  Receipt Date: 20170913
  Transmission Date: 20171128
  Serious: Yes (Other)
  Sender: FDA-Public Use
  Company Number: FR-MERCK KGAA-2026099

PATIENT
  Age: 71 Year
  Sex: Female

DRUGS (4)
  1. NOVOTHYROX [Suspect]
     Active Substance: LEVOTHYROXINE SODIUM
     Indication: HYPOTHYROIDISM
     Route: 048
     Dates: start: 2017
  2. KARDEGIC [Concomitant]
     Active Substance: ASPIRIN LYSINE
  3. ZOCOR [Concomitant]
     Active Substance: SIMVASTATIN
  4. TEMERIT [Concomitant]
     Active Substance: NEBIVOLOL

REACTIONS (9)
  - Blood thyroid stimulating hormone increased [Not Recovered/Not Resolved]
  - Myalgia [Unknown]
  - Gastrointestinal disorder [Unknown]
  - Fatigue [Unknown]
  - Muscle spasms [Unknown]
  - Palpitations [Unknown]
  - Nausea [Unknown]
  - Arthralgia [Unknown]
  - Headache [Not Recovered/Not Resolved]

NARRATIVE: CASE EVENT DATE: 201704
